FAERS Safety Report 9015128 (Version 1)
Quarter: 2013Q1

REPORT INFORMATION
  Report Type: Spontaneous
  Country: US (occurrence: None)
  Receive Date: 20130103
  Receipt Date: 20130103
  Transmission Date: 20140127
  Serious: Yes (Other)
  Sender: FDA-Public Use
  Company Number: ENTC2013-0001

PATIENT
  Age: 83 Year
  Sex: Female

DRUGS (4)
  1. STALEVO (LEVODOPA, CARBIDOPA, ENTACAPONE) [Suspect]
  2. NEXIUM 1-2-3 (ESOMEPRAZOLE MAGNESIUM) [Concomitant]
  3. DIATROPAN (OXYBUTYNIN HYDROCHLORIDE) [Concomitant]
  4. INDERAL (PROPRANOLOL HYDROCHLORIDE) [Concomitant]

REACTIONS (3)
  - Hearing impaired [None]
  - Condition aggravated [None]
  - Eye disorder [None]
